FAERS Safety Report 16290032 (Version 1)
Quarter: 2019Q2

REPORT INFORMATION
  Report Type: Spontaneous
  Country: GB (occurrence: GB)
  Receive Date: 20190509
  Receipt Date: 20190509
  Transmission Date: 20190711
  Serious: Yes (Other)
  Sender: FDA-Public Use
  Company Number: GB-ROCHE-2314138

PATIENT
  Age: 56 Year
  Sex: Female
  Weight: 75.4 kg

DRUGS (8)
  1. CHLORPHENAMINE [Concomitant]
     Active Substance: CHLORPHENIRAMINE MALEATE
  2. DAPSONE. [Concomitant]
     Active Substance: DAPSONE
  3. FELODIPINE. [Concomitant]
     Active Substance: FELODIPINE
  4. CLOPIDOGREL [Concomitant]
     Active Substance: CLOPIDOGREL BISULFATE
  5. BENDROFLUMETHIAZIDE [Concomitant]
     Active Substance: BENDROFLUMETHIAZIDE
  6. KADCYLA [Suspect]
     Active Substance: ADO-TRASTUZUMAB EMTANSINE
     Indication: BREAST CANCER METASTATIC
     Route: 042
  7. HYDROXYCARBAMIDE [Concomitant]
     Active Substance: HYDROXYUREA
  8. DEXAMETHASONE. [Concomitant]
     Active Substance: DEXAMETHASONE

REACTIONS (1)
  - Nephrotic syndrome [Not Recovered/Not Resolved]

NARRATIVE: CASE EVENT DATE: 20181012
